FAERS Safety Report 9729206 (Version 1)
Quarter: 2013Q4

REPORT INFORMATION
  Report Type: Spontaneous
  Country: CN (occurrence: CN)
  Receive Date: 20131204
  Receipt Date: 20131204
  Transmission Date: 20140711
  Serious: Yes (Other)
  Sender: FDA-Public Use
  Company Number: CN-PFIZER INC-2013341090

PATIENT
  Age: 51 Year
  Sex: Male

DRUGS (3)
  1. METHYLPREDNISOLONE [Suspect]
     Dosage: UNK
  2. FK506 [Suspect]
     Dosage: UNK
  3. CELLCEPT [Concomitant]
     Dosage: UNK

REACTIONS (1)
  - Renal impairment [Unknown]
